FAERS Safety Report 9305136 (Version 7)
Quarter: 2013Q3

REPORT INFORMATION
  Report Type: Report from Study
  Country: IL (occurrence: IL)
  Receive Date: 20130523
  Receipt Date: 20130903
  Transmission Date: 20140515
  Serious: Yes (Hospitalization, Other)
  Sender: FDA-Public Use
  Company Number: PHHY2013IL051455

PATIENT
  Age: 36 Year
  Sex: Female

DRUGS (1)
  1. GILENYA [Suspect]
     Indication: MULTIPLE SCLEROSIS
     Dosage: 0.5 MG, QD
     Route: 048
     Dates: start: 20110907, end: 20130602

REACTIONS (11)
  - Muscular weakness [Recovering/Resolving]
  - Hemiparesis [Recovering/Resolving]
  - Confusional state [Recovering/Resolving]
  - Disorientation [Recovering/Resolving]
  - Deafness [Recovering/Resolving]
  - Central nervous system lesion [Recovering/Resolving]
  - Gait disturbance [Recovering/Resolving]
  - Slow speech [Recovering/Resolving]
  - Dysphagia [Recovering/Resolving]
  - Strabismus [Recovering/Resolving]
  - Headache [Recovering/Resolving]
